FAERS Safety Report 9490107 (Version 2)
Quarter: 2013Q3

REPORT INFORMATION
  Report Type: Spontaneous
  Country: SE (occurrence: SE)
  Receive Date: 20130830
  Receipt Date: 20130906
  Transmission Date: 20140515
  Serious: Yes (Other)
  Sender: FDA-Public Use
  Company Number: SE-ROCHE-1268479

PATIENT
  Sex: Male
  Weight: 113.4 kg

DRUGS (11)
  1. ROACTEMRA [Suspect]
     Indication: RHEUMATOID ARTHRITIS
     Route: 065
     Dates: start: 20130816
  2. OMEPRAZOL [Concomitant]
     Indication: DYSPEPSIA
     Route: 050
     Dates: start: 200705
  3. NOVOMIX 30 FLEXPEN [Concomitant]
     Indication: DIABETES MELLITUS
     Dosage: 100 IE/ML
     Route: 050
     Dates: start: 200705
  4. GLUCOPHAGE [Concomitant]
     Indication: DIABETES MELLITUS
     Route: 050
     Dates: start: 200705
  5. TROMBYL [Concomitant]
     Route: 050
     Dates: start: 201204
  6. FURIX [Concomitant]
     Indication: HYPERTENSION
     Route: 050
     Dates: end: 201203
  7. EMCONCOR [Concomitant]
     Indication: HYPERTENSION
     Route: 050
     Dates: start: 201107
  8. COZAAR [Concomitant]
     Indication: HYPERTENSION
     Route: 050
     Dates: start: 200903
  9. CRESTOR [Concomitant]
     Route: 050
     Dates: start: 201002
  10. ALVEDON [Concomitant]
     Indication: RHEUMATOID ARTHRITIS
     Route: 050
     Dates: start: 201004
  11. SAROTEN [Concomitant]
     Indication: RHEUMATOID ARTHRITIS
     Route: 050
     Dates: start: 201303

REACTIONS (3)
  - Poor dental condition [Unknown]
  - Device failure [Unknown]
  - Dental caries [Not Recovered/Not Resolved]
